FAERS Safety Report 10792494 (Version 1)
Quarter: 2015Q1

REPORT INFORMATION
  Report Type: Spontaneous
  Country: FR (occurrence: FR)
  Receive Date: 20150213
  Receipt Date: 20150213
  Transmission Date: 20150721
  Serious: Yes (Hospitalization)
  Sender: FDA-Public Use
  Company Number: FR-SA-2015SA016291

PATIENT
  Age: 90 Year
  Sex: Female

DRUGS (8)
  1. LASILIX [Suspect]
     Active Substance: FUROSEMIDE
     Route: 048
     Dates: end: 20140910
  2. PREDNISONE. [Concomitant]
     Active Substance: PREDNISONE
  3. LASILIX [Suspect]
     Active Substance: FUROSEMIDE
     Route: 048
     Dates: start: 20140925, end: 20140925
  4. LASILIX [Suspect]
     Active Substance: FUROSEMIDE
     Route: 048
     Dates: start: 20140926, end: 20140926
  5. RISEDRONATE SODIUM. [Concomitant]
     Active Substance: RISEDRONATE SODIUM
  6. DIFFU K [Concomitant]
     Active Substance: POTASSIUM CHLORIDE
  7. UVEDOSE [Concomitant]
     Active Substance: CHOLECALCIFEROL
  8. LASILIX [Suspect]
     Active Substance: FUROSEMIDE
     Route: 048

REACTIONS (3)
  - Fall [Recovered/Resolved]
  - Orthostatic hypotension [Recovered/Resolved]
  - Hypotension [Recovered/Resolved]

NARRATIVE: CASE EVENT DATE: 201409
